FAERS Safety Report 7506863-5 (Version None)
Quarter: 2011Q2

REPORT INFORMATION
  Report Type: 
  Country: None (occurrence: None)
  Receive Date: 20110526
  Receipt Date: 20110520
  Transmission Date: 20111010
  Serious: Yes (Death)
  Sender: FDA-Public Use
  Company Number: B0721694A

PATIENT
  Age: 53 Year
  Sex: Male

DRUGS (1)
  1. LAMICTAL [Suspect]
     Route: 048

REACTIONS (1)
  - CEREBRAL HAEMORRHAGE [None]
